FAERS Safety Report 24384636 (Version 3)
Quarter: 2024Q4

REPORT INFORMATION
  Report Type: Spontaneous
  Country: DE (occurrence: DE)
  Receive Date: 20241001
  Receipt Date: 20241025
  Transmission Date: 20250114
  Serious: Yes (Hospitalization, Other)
  Sender: SANDOZ
  Company Number: DE-BRISTOL-MYERS SQUIBB COMPANY-2024-112682

PATIENT
  Age: 47 Year
  Sex: Female
  Weight: 53.5 kg

DRUGS (25)
  1. FLUOROURACIL [Suspect]
     Active Substance: FLUOROURACIL
     Indication: Gastric cancer
     Dosage: 2171 MG
     Route: 042
     Dates: start: 20240403, end: 20240702
  2. DOCETAXEL [Suspect]
     Active Substance: DOCETAXEL
     Indication: Gastric cancer
     Dosage: FREQ: ONCE
     Route: 042
     Dates: start: 20240403, end: 20240403
  3. OXALIPLATIN [Suspect]
     Active Substance: OXALIPLATIN
     Indication: Gastric cancer
     Dosage: 141 MG
     Route: 042
     Dates: start: 20240403, end: 20240702
  4. OPDIVO [Suspect]
     Active Substance: NIVOLUMAB
     Indication: Gastric cancer
     Dosage: 240 MG
     Route: 042
     Dates: start: 20240403, end: 20240702
  5. BUTYLSCOPOLAMINE BROMIDE [Concomitant]
     Active Substance: BUTYLSCOPOLAMINE BROMIDE
     Indication: Adverse event
     Dosage: 20.000MG QD
     Route: 042
     Dates: start: 20240719, end: 20240719
  6. DEXAMETHASONE [Concomitant]
     Active Substance: DEXAMETHASONE
     Indication: Prophylaxis
     Dosage: 8.000MG
     Route: 042
     Dates: start: 20240403, end: 20240702
  7. FENTANYL [Concomitant]
     Active Substance: FENTANYL
     Indication: Product used for unknown indication
     Dosage: FREQ:3
     Route: 062
     Dates: start: 20240501, end: 20240507
  8. LEUCOVORIN [Concomitant]
     Active Substance: LEUCOVORIN\LEUCOVORIN CALCIUM
     Indication: Gastric cancer
     Dosage: 334.000MG
     Route: 042
     Dates: start: 20240403, end: 20240702
  9. FUROSEMIDE [Concomitant]
     Active Substance: FUROSEMIDE
     Indication: Product used for unknown indication
     Dosage: 20.000MG QD
     Route: 042
     Dates: start: 20240717, end: 20240717
  10. FUROSEMIDE [Concomitant]
     Active Substance: FUROSEMIDE
     Indication: Gastric cancer
  11. GRANISETRON [Concomitant]
     Active Substance: GRANISETRON
     Indication: Prophylaxis
     Dosage: 1.000MG
     Route: 042
     Dates: start: 20240403, end: 20240702
  12. HYDROCORTISONE [Concomitant]
     Active Substance: HYDROCORTISONE
     Indication: Adverse event
     Dosage: 50.000MG QD
     Route: 042
     Dates: start: 20240712, end: 20240712
  13. LASIX [Concomitant]
     Active Substance: FUROSEMIDE
     Indication: Gastric cancer
     Dosage: 20.000MG QD
     Route: 042
     Dates: start: 20240717, end: 20240718
  14. MCP [Concomitant]
     Active Substance: METOCLOPRAMIDE HYDROCHLORIDE
     Indication: Adverse event
     Dosage: 10.000MG
     Route: 042
     Dates: start: 20240711, end: 20240817
  15. MEROPENEM [Concomitant]
     Active Substance: MEROPENEM
     Indication: Adverse event
     Dosage: 500.000MG
     Route: 042
     Dates: start: 20240717, end: 20240722
  16. MORPHINE [Concomitant]
     Active Substance: MORPHINE
     Indication: Adverse event
     Dosage: 10.000MG
     Route: 042
     Dates: start: 20240712, end: 20240817
  17. METAMIZOLE [Concomitant]
     Active Substance: METAMIZOLE
     Indication: Product used for unknown indication
     Route: 048
     Dates: start: 20240423, end: 20240515
  18. ACETAMINOPHEN [Concomitant]
     Active Substance: ACETAMINOPHEN
     Indication: Adverse event
     Dosage: 1000.000MG
     Route: 042
     Dates: start: 20240712, end: 20240729
  19. PIPERACILLIN [Concomitant]
     Active Substance: PIPERACILLIN
     Indication: Adverse event
     Dosage: 4.000G
     Route: 042
     Dates: start: 20240712, end: 20240717
  20. PREDNISOLONE [Concomitant]
     Active Substance: PREDNISOLONE
     Indication: Adverse event
     Dosage: 50.000MG QD
     Route: 042
     Dates: start: 20240717, end: 20240722
  21. Prucaloprid zentiva [Concomitant]
     Indication: Prophylaxis
     Dosage: 2.000MG QD
     Route: 048
     Dates: start: 20240507, end: 20240713
  22. SMOFKABIVEN CENTRAL [Concomitant]
     Indication: Gastric cancer
     Dosage: 1477.000ML QD
     Route: 042
     Dates: start: 20240430, end: 20240817
  23. SPIRONOLACTONE [Concomitant]
     Active Substance: SPIRONOLACTONE
     Indication: Gastric cancer
     Dosage: 50.000MG QD
     Route: 048
     Dates: start: 20240405, end: 20240430
  24. DIMENHYDRINATE [Concomitant]
     Active Substance: DIMENHYDRINATE
     Indication: Product used for unknown indication
     Dosage: 5.000MG QD
     Route: 042
     Dates: start: 20240405, end: 20240817
  25. OLANZAPINE [Concomitant]
     Active Substance: OLANZAPINE
     Indication: Adverse event
     Dosage: 10.000MG QD
     Route: 048
     Dates: start: 20240715, end: 20240817

REACTIONS (12)
  - Ileus [Recovered/Resolved with Sequelae]
  - Fatigue [Recovering/Resolving]
  - Renal failure [Recovering/Resolving]
  - Anaemia [Recovering/Resolving]
  - Hypokalaemia [Recovering/Resolving]
  - Oedema peripheral [Not Recovered/Not Resolved]
  - Hypoalbuminaemia [Recovered/Resolved]
  - Hypercalcaemia [Recovered/Resolved]
  - Cough [Recovered/Resolved]
  - Nausea [Not Recovered/Not Resolved]
  - Rash [Recovered/Resolved]
  - Candida infection [Recovered/Resolved]

NARRATIVE: CASE EVENT DATE: 20240702
